FAERS Safety Report 17008507 (Version 1)
Quarter: 2019Q4

REPORT INFORMATION
  Report Type: Spontaneous
  Country: US (occurrence: US)
  Receive Date: 20190929
  Receipt Date: 20190929
  Transmission Date: 20200122
  Serious: Yes (Hospitalization)
  Sender: FDA-Public Use
  Company Number: None

PATIENT
  Age: 78 Year

DRUGS (1)
  1. STELARA [Suspect]
     Active Substance: USTEKINUMAB
     Indication: CROHN^S DISEASE
     Dosage: ?          OTHER FREQUENCY:EVERY8WEEKS;?
     Route: 058
     Dates: start: 20190801

REACTIONS (5)
  - Condition aggravated [None]
  - Transient ischaemic attack [None]
  - Pyrexia [None]
  - Upper limb fracture [None]
  - Abdominal pain [None]

NARRATIVE: CASE EVENT DATE: 201909
